FAERS Safety Report 9136367 (Version 1)
Quarter: 2013Q1

REPORT INFORMATION
  Report Type: Spontaneous
  Country: US (occurrence: US)
  Receive Date: 20130219
  Receipt Date: 20130219
  Transmission Date: 20140127
  Serious: No
  Sender: FDA-Public Use
  Company Number: US-BRISTOL-MYERS SQUIBB COMPANY-16526311

PATIENT
  Age: 59 Year
  Sex: Female
  Weight: 57.14 kg

DRUGS (3)
  1. ABATACEPT SUBQ INJECTION 125MG/ML [Suspect]
     Dosage: HAD ONE IV INFUSION AND TWO INJECTIONS
     Dates: start: 20120404
  2. LEFLUNOMIDE [Concomitant]
  3. DAYPRO [Concomitant]

REACTIONS (1)
  - Depressed mood [Unknown]
